FAERS Safety Report 5600134-X (Version None)
Quarter: 2008Q1

REPORT INFORMATION
  Report Type: 
  Country: None (occurrence: None)
  Receive Date: 20080123
  Receipt Date: 20080118
  Transmission Date: 20080703
  Serious: Yes (Other)
  Sender: FDA-Public Use
  Company Number: B0504397A

PATIENT
  Age: 61 Year
  Sex: Male

DRUGS (2)
  1. LAMICTAL [Suspect]
     Indication: DEPRESSION
     Dosage: 100MG PER DAY
     Route: 048
  2. VENLAFAXINE HCL [Concomitant]
     Dosage: 150MG PER DAY

REACTIONS (3)
  - ATAXIA [None]
  - CONFUSIONAL STATE [None]
  - PRURITUS [None]
